FAERS Safety Report 13119650 (Version 1)
Quarter: 2017Q1

REPORT INFORMATION
  Report Type: Not Available
  Country: US (occurrence: US)
  Receive Date: 20170117
  Receipt Date: 20170117
  Transmission Date: 20170428
  Serious: Yes (Other)
  Sender: FDA-Public Use
  Company Number: US--2016-US-000038

PATIENT
  Age: 40 Year
  Sex: Male

DRUGS (2)
  1. ZOLPIDEM TARTRATE TABLETS USP, 10 MG (VIVIMED) [Suspect]
     Active Substance: ZOLPIDEM TARTRATE
     Indication: INSOMNIA
     Dosage: UPTO10 TABLETS EVERY NIGHT
  2. MULTIVITAMINS [Concomitant]
     Active Substance: VITAMINS
     Indication: PRODUCT USED FOR UNKNOWN INDICATION

REACTIONS (4)
  - Seizure [Unknown]
  - Inappropriate schedule of drug administration [None]
  - Incorrect dose administered [None]
  - Product label confusion [Unknown]
